FAERS Safety Report 5866245-9 (Version None)
Quarter: 2008Q3

REPORT INFORMATION
  Report Type: 
  Country: None (occurrence: None)
  Receive Date: 20080829
  Receipt Date: 20080818
  Transmission Date: 20090109
  Serious: Yes (Other)
  Sender: FDA-Public Use
  Company Number: US-PFIZER INC-2008070278

PATIENT
  Sex: Female
  Weight: 86.36 kg

DRUGS (17)
  1. LYRICA [Suspect]
     Indication: MUSCULOSKELETAL PAIN
     Dates: start: 20080101, end: 20080101
  2. LISINOPRIL [Concomitant]
  3. VITAMIN TAB [Concomitant]
  4. POTASSIUM CHLORIDE [Concomitant]
  5. CALCIUM CITRATE [Concomitant]
  6. VITAMIN D [Concomitant]
  7. LAXATIVES [Concomitant]
  8. SPIRONOLACTONE [Concomitant]
     Indication: SWELLING
  9. FELODIPINE [Concomitant]
  10. PLAVIX [Concomitant]
  11. FUROSEMIDE [Concomitant]
  12. SIMVASTATIN [Concomitant]
  13. CLONAZEPAM [Concomitant]
  14. OXYCODONE HCL [Concomitant]
  15. CYMBALTA [Concomitant]
     Indication: DEPRESSION
  16. TRAZODONE HCL [Concomitant]
     Indication: SLEEP DISORDER
  17. ALL OTHER THERAPEUTIC PRODUCTS [Concomitant]

REACTIONS (3)
  - JOINT SWELLING [None]
  - SKIN FISSURES [None]
  - SKIN HAEMORRHAGE [None]
